FAERS Safety Report 8737794 (Version 2)
Quarter: 2013Q4

REPORT INFORMATION
  Report Type: Spontaneous
  Country: US (occurrence: US)
  Receive Date: 20120822
  Receipt Date: 20131101
  Transmission Date: 20140711
  Serious: Yes (Hospitalization, Other)
  Sender: FDA-Public Use
  Company Number: US-009507513-1207USA011166

PATIENT
  Age: 52 Year
  Sex: Male

DRUGS (1)
  1. SIMVASTATIN TABLETS, USP [Suspect]
     Dosage: 40 MG, QPM
     Route: 048

REACTIONS (3)
  - Rhabdomyolysis [Unknown]
  - Liver function test abnormal [Unknown]
  - Muscle spasms [Unknown]
